FAERS Safety Report 8311549-3 (Version None)
Quarter: 2012Q1

REPORT INFORMATION
  Report Type: 
  Country: None (occurrence: None)
  Receive Date: 20120315
  Receipt Date: 20101220
  Transmission Date: 20120608
  Serious: No
  Sender: FDA-Public Use
  Company Number: PHHY2010US82861

PATIENT
  Age: 30 Year
  Sex: Female
  Weight: 81.6 kg

DRUGS (6)
  1. TRIMIXIN (SULFAMETHOXAZOLE, TRIMETHOPRIM) [Concomitant]
  2. GABAPENTIN [Concomitant]
  3. GILENYA [Suspect]
     Indication: RELAPSING-REMITTING MULTIPLE SCLEROSIS
     Dosage: 0.5 MG, QD, ORAL
     Route: 048
     Dates: start: 20101025
  4. BUTALBITAL [Concomitant]
  5. MIDRIN (DICHLORALPHENAZONE, ISOMETHEPTENE, PARACETAMOL) [Concomitant]
  6. TRAMADOL HCL [Concomitant]

REACTIONS (2)
  - PAIN IN EXTREMITY [None]
  - HYPOAESTHESIA [None]
